FAERS Safety Report 9645465 (Version 1)
Quarter: 2013Q4

REPORT INFORMATION
  Report Type: Spontaneous
  Country: CN (occurrence: CN)
  Receive Date: 20131025
  Receipt Date: 20131025
  Transmission Date: 20140711
  Serious: Yes (Death)
  Sender: FDA-Public Use
  Company Number: CN-PFIZER INC-2013302048

PATIENT
  Age: 20 Year
  Sex: Male

DRUGS (2)
  1. VFEND [Suspect]
     Indication: ASPERGILLUS INFECTION
     Dosage: 400 MG/DAY
     Route: 041
     Dates: start: 20130927, end: 20130927
  2. VFEND [Suspect]
     Dosage: 200 MG, 2X/DAY
     Route: 041
     Dates: start: 20130928, end: 20131015

REACTIONS (7)
  - Haemorrhage [Fatal]
  - Haemoptysis [Fatal]
  - Productive cough [Fatal]
  - Ejection fraction decreased [Unknown]
  - Tongue discolouration [Unknown]
  - Heart rate increased [Unknown]
  - Glossitis [Unknown]
